FAERS Safety Report 18991246 (Version 2)
Quarter: 2022Q1

REPORT INFORMATION
  Report Type: Spontaneous
  Country: IT (occurrence: IT)
  Receive Date: 20210310
  Receipt Date: 20220106
  Transmission Date: 20220423
  Serious: Yes (Hospitalization, Other)
  Sender: FDA-Public Use
  Company Number: IT-SUN PHARMACEUTICAL INDUSTRIES LTD-2021R1-284959

PATIENT
  Age: 65 Year
  Sex: Male

DRUGS (9)
  1. PEMETREXED [Suspect]
     Active Substance: PEMETREXED
     Indication: Lung adenocarcinoma stage IV
     Dosage: 500 MILLIGRAM/SQ. METER, EVERY THREE WEEKS
     Route: 042
     Dates: start: 20200306
  2. CARBOPLATIN [Suspect]
     Active Substance: CARBOPLATIN
     Indication: Lung adenocarcinoma stage IV
     Dosage: UNK
     Route: 065
     Dates: start: 20200306
  3. PEMBROLIZUMAB [Suspect]
     Active Substance: PEMBROLIZUMAB
     Indication: Lung adenocarcinoma stage IV
     Dosage: UNK
     Route: 065
     Dates: start: 20200306
  4. RITONAVIR [Concomitant]
     Active Substance: RITONAVIR
     Indication: COVID-19 pneumonia
     Dosage: 100 MILLIGRAM, UNK
     Route: 065
     Dates: start: 202003
  5. CYANOCOBALAMIN [Concomitant]
     Active Substance: CYANOCOBALAMIN
     Indication: Vitamin supplementation
     Dosage: UNK
     Route: 065
  6. HYDROXYCHLOROQUINE [Concomitant]
     Active Substance: HYDROXYCHLOROQUINE
     Indication: COVID-19 pneumonia
     Dosage: 200 MILLIGRAM, DAILY
     Route: 065
     Dates: start: 202003
  7. FOLIC ACID [Concomitant]
     Active Substance: FOLIC ACID
     Indication: Vitamin supplementation
     Dosage: UNK
     Route: 065
  8. TOCILIZUMAB [Concomitant]
     Active Substance: TOCILIZUMAB
     Indication: COVID-19 pneumonia
     Dosage: 8 MILLIGRAM/KILOGRAM, BID
     Route: 065
     Dates: start: 202003
  9. DARUNAVIR [Concomitant]
     Active Substance: DARUNAVIR
     Indication: COVID-19 pneumonia
     Dosage: 800 MILLIGRAM, DAILY
     Route: 065
     Dates: start: 202003

REACTIONS (6)
  - COVID-19 pneumonia [Recovered/Resolved]
  - Off label use [Not Recovered/Not Resolved]
  - Leukopenia [Recovered/Resolved]
  - Neutropenia [Recovered/Resolved]
  - COVID-19 [Recovered/Resolved]
  - Off label use [Unknown]

NARRATIVE: CASE EVENT DATE: 20200301
